FAERS Safety Report 10043255 (Version 1)
Quarter: 2014Q1

REPORT INFORMATION
  Report Type: Report from Study
  Country: US (occurrence: US)
  Receive Date: 20140328
  Receipt Date: 20140328
  Transmission Date: 20141002
  Serious: Yes (Other)
  Sender: FDA-Public Use
  Company Number: PHEH2014US005833

PATIENT
  Sex: Male

DRUGS (1)
  1. TASIGNA [Suspect]

REACTIONS (5)
  - Adrenal disorder [Unknown]
  - Galactorrhoea [Unknown]
  - Cyst [Unknown]
  - Pericarditis [Unknown]
  - Gynaecomastia [Unknown]
